FAERS Safety Report 23811414 (Version 1)
Quarter: 2024Q2

REPORT INFORMATION
  Report Type: Spontaneous
  Country: ES (occurrence: ES)
  Receive Date: 20240503
  Receipt Date: 20240503
  Transmission Date: 20240715
  Serious: Yes (Other)
  Sender: FDA-Public Use
  Company Number: ES-CIPLA LTD.-2024ES04175

PATIENT

DRUGS (10)
  1. SOLIFENACIN [Suspect]
     Active Substance: SOLIFENACIN
     Indication: Urinary incontinence
     Dosage: 5.0 MG
     Route: 048
     Dates: start: 20230721, end: 20231010
  2. SEFFALAIR SPIROMAX [Concomitant]
     Indication: Asthma
     Dosage: 1.0 PUFF C/12 H
     Route: 065
     Dates: start: 20220802
  3. BISOPROLOL [Concomitant]
     Active Substance: BISOPROLOL\BISOPROLOL FUMARATE
     Indication: Essential hypertension
     Dosage: 2.5 MG DE
     Route: 048
     Dates: start: 20201210
  4. XIGDUO XR [Concomitant]
     Active Substance: DAPAGLIFLOZIN PROPANEDIOL\METFORMIN HYDROCHLORIDE
     Indication: Diabetic nephropathy
     Dosage: 1.0 COMP C/12 H
     Route: 048
     Dates: start: 20190130
  5. TOUJEO [Concomitant]
     Active Substance: INSULIN GLARGINE
     Indication: Diabetic nephropathy
     Dosage: 38.0 UI C/24 H
     Route: 058
     Dates: start: 20191205
  6. NOVORAPID [Concomitant]
     Active Substance: INSULIN ASPART
     Indication: Diabetic nephropathy
     Dosage: 30.0 UI C/24 H
     Route: 058
     Dates: start: 20211210
  7. ASPIRIN [Concomitant]
     Active Substance: ASPIRIN
     Indication: Type 2 diabetes mellitus
     Dosage: 100.0 MG DE
     Route: 048
     Dates: start: 20141007
  8. FENOFIBRATE [Concomitant]
     Active Substance: FENOFIBRATE
     Indication: Diabetic nephropathy
     Dosage: 145.0 MG CE
     Route: 048
     Dates: start: 20210503
  9. DAFIRO HCT [Concomitant]
     Active Substance: AMLODIPINE\HYDROCHLOROTHIAZIDE\VALSARTAN
     Indication: Essential hypertension
     Dosage: 10 MG/160 MG/12.5 MG (1.0 COMP CE)
     Route: 048
     Dates: start: 20180306
  10. CONDROSAN [Concomitant]
     Indication: Osteoarthritis
     Dosage: 800.0 MG DE
     Route: 048
     Dates: start: 20211005

REACTIONS (1)
  - Diarrhoea [Recovering/Resolving]

NARRATIVE: CASE EVENT DATE: 20230801
